FAERS Safety Report 9597918 (Version 1)
Quarter: 2013Q4

REPORT INFORMATION
  Report Type: Spontaneous
  Country: US (occurrence: US)
  Receive Date: 20131004
  Receipt Date: 20131004
  Transmission Date: 20140711
  Serious: No
  Sender: FDA-Public Use
  Company Number: US-AMGEN-USASP2013021797

PATIENT
  Age: 50 Year
  Sex: Female
  Weight: 78.01 kg

DRUGS (7)
  1. ENBREL [Suspect]
     Indication: PRODUCT USED FOR UNKNOWN INDICATION
     Dosage: 50 MG, QWK
     Route: 058
  2. FOLIC ACID [Concomitant]
     Dosage: 1 MG, PO
  3. NAPROSYN                           /00256201/ [Concomitant]
     Dosage: 500 MG, PO
     Route: 048
  4. FISH OIL [Concomitant]
     Dosage: UNK
     Route: 048
  5. MULTIVITAMIN                       /00097801/ [Concomitant]
     Dosage: UNK
     Route: 048
  6. METHOTREXATE [Concomitant]
     Dosage: 2.5 MG,
     Route: 048
  7. VITAMIN D3 [Concomitant]
     Dosage: 10000 IU,
     Route: 048

REACTIONS (2)
  - Vision blurred [Unknown]
  - Headache [Unknown]
